FAERS Safety Report 12964172 (Version 2)
Quarter: 2016Q4

REPORT INFORMATION
  Report Type: Spontaneous
  Country: US (occurrence: US)
  Receive Date: 20161122
  Receipt Date: 20161206
  Transmission Date: 20170207
  Serious: Yes (Hospitalization, Other)
  Sender: FDA-Public Use
  Company Number: US-MALLINCKRODT-T201605921

PATIENT
  Age: 47 Year
  Sex: Male

DRUGS (19)
  1. LIORESAL [Suspect]
     Active Substance: BACLOFEN
     Indication: BRAIN INJURY
  2. VITAMIN C [Concomitant]
     Active Substance: ASCORBIC ACID
  3. GABLOFEN [Suspect]
     Active Substance: BACLOFEN
     Dosage: 200 ?G, QD
     Route: 037
     Dates: end: 20161106
  4. VITAMIN B-6 [Concomitant]
     Active Substance: PYRIDOXINE
  5. GABLOFEN [Suspect]
     Active Substance: BACLOFEN
     Indication: PRODUCT USED FOR UNKNOWN INDICATION
     Dosage: 300 ?G, QD
     Route: 037
     Dates: start: 20161106
  6. FOSINOPRIL [Concomitant]
     Active Substance: FOSINOPRIL
  7. GLIMEPIRIDE. [Concomitant]
     Active Substance: GLIMEPIRIDE
  8. FISH OIL [Concomitant]
     Active Substance: FISH OIL
  9. MONOPRIL [Concomitant]
     Active Substance: FOSINOPRIL SODIUM
  10. OMEGA-3 ACIDS [Concomitant]
     Active Substance: OMEGA-3 FATTY ACIDS
  11. MULTI-VITAMINS VITAFIT [Concomitant]
     Active Substance: VITAMINS
  12. LIORESAL [Suspect]
     Active Substance: BACLOFEN
     Indication: MUSCLE SPASTICITY
     Dosage: 1672 ?G, QD
     Route: 037
  13. FUROSEMIDE. [Concomitant]
     Active Substance: FUROSEMIDE
  14. METFORMIN [Concomitant]
     Active Substance: METFORMIN HYDROCHLORIDE
  15. NYSTATIN. [Concomitant]
     Active Substance: NYSTATIN
  16. PRAVASTATIN. [Concomitant]
     Active Substance: PRAVASTATIN
  17. ZINC GLUCONATE [Concomitant]
     Active Substance: ZINC GLUCONATE
  18. ZINC SULFATE [Concomitant]
     Active Substance: ZINC SULFATE\ZINC SULFATE ANHYDROUS
  19. ANTIBIOTICS [Concomitant]
     Active Substance: UNSPECIFIED INGREDIENT
     Indication: PROPHYLAXIS
     Dosage: UNK
     Dates: start: 20161106

REACTIONS (4)
  - Muscle spasticity [Unknown]
  - Balance disorder [Unknown]
  - Hemiparesis [Unknown]
  - Device issue [Unknown]

NARRATIVE: CASE EVENT DATE: 20161005
